FAERS Safety Report 5445816-8 (Version None)
Quarter: 2007Q3

REPORT INFORMATION
  Report Type: 
  Country: None (occurrence: None)
  Receive Date: 20070904
  Receipt Date: 20070823
  Transmission Date: 20080115
  Serious: Yes (Death)
  Sender: FDA-Public Use
  Company Number: 056-C5013-07050240

PATIENT
  Age: 68 Year
  Sex: Male

DRUGS (6)
  1. CC-5013 (LENALIDOMIDE) (CAPSULES) [Suspect]
     Indication: MULTIPLE MYELOMA
     Dosage: DAILY, PER ORAL
     Route: 048
     Dates: start: 20070209, end: 20070413
  2. ARANESP [Concomitant]
  3. SKENAN (MORPHINE SULFATE) [Concomitant]
  4. ZOMETA [Concomitant]
  5. SOLU-MEDROL [Concomitant]
  6. ITERATIVES ANTIBIOTHERAPY (ANTIBIOTICS) [Concomitant]

REACTIONS (6)
  - ANAEMIA [None]
  - DISEASE PROGRESSION [None]
  - DRUG INTOLERANCE [None]
  - INFECTION [None]
  - PAIN [None]
  - RENAL FAILURE [None]
